FAERS Safety Report 23872797 (Version 1)
Quarter: 2024Q2

REPORT INFORMATION
  Report Type: Report from Study
  Country: HR (occurrence: HR)
  Receive Date: 20240520
  Receipt Date: 20240520
  Transmission Date: 20240716
  Serious: Yes (Other)
  Sender: FDA-Public Use
  Company Number: HR-AMICUS THERAPEUTICS, INC.-AMI_2782

PATIENT

DRUGS (5)
  1. CIPAGLUCOSIDASE ALFA [Suspect]
     Active Substance: CIPAGLUCOSIDASE ALFA
     Indication: Product used for unknown indication
     Dosage: UNK
     Route: 055
     Dates: start: 20231103
  2. MIGLUSTAT [Suspect]
     Active Substance: MIGLUSTAT
     Indication: Product used for unknown indication
     Dosage: UNK
     Route: 048
  3. LEVOTHYROXINE [Concomitant]
     Active Substance: LEVOTHYROXINE\LEVOTHYROXINE SODIUM
     Indication: Thyroid operation
     Dosage: 75 MICROGRAM
     Route: 065
     Dates: start: 2003
  4. IBUPROFEN [Concomitant]
     Active Substance: IBUPROFEN
     Indication: Sacroiliitis
     Dosage: UNK, PRN
     Route: 065
     Dates: start: 2018
  5. SULFASALAZINE [Concomitant]
     Active Substance: SULFASALAZINE
     Indication: Sacroiliitis
     Dosage: UNK
     Route: 065
     Dates: start: 2018, end: 2020

REACTIONS (4)
  - Anaphylactic reaction [Recovered/Resolved]
  - Urticaria [Recovered/Resolved]
  - Occupational exposure to product [Recovered/Resolved]
  - Product preparation issue [Recovered/Resolved]

NARRATIVE: CASE EVENT DATE: 20231103
